FAERS Safety Report 7564159-X (Version None)
Quarter: 2011Q2

REPORT INFORMATION
  Report Type: 
  Country: None (occurrence: None)
  Receive Date: 20110622
  Receipt Date: 20110616
  Transmission Date: 20111010
  Serious: Yes (Other)
  Sender: FDA-Public Use
  Company Number: CO-PFIZER INC-2011109164

PATIENT
  Age: 15 Year
  Sex: Male

DRUGS (2)
  1. GENOTROPIN [Suspect]
     Indication: BODY HEIGHT BELOW NORMAL
     Dosage: 1.2 MG, 1X/DAY
     Dates: start: 20080901
  2. DESMOPRESSIN [Concomitant]
     Indication: DIABETES INSIPIDUS
     Dosage: 0.1 MG, 1X/DAY
     Dates: start: 20080901

REACTIONS (1)
  - GREENSTICK FRACTURE [None]
